FAERS Safety Report 5005526-8 (Version None)
Quarter: 2006Q2

REPORT INFORMATION
  Report Type: 
  Country: None (occurrence: None)
  Receive Date: 20060518
  Receipt Date: 20051018
  Transmission Date: 20061013
  Serious: Yes (Death, Hospitalization)
  Sender: FDA-Public Use
  Company Number: CZ-ROCHE-421499

PATIENT
  Age: 53 Year
  Sex: Female

DRUGS (1)
  1. CAPECITABINE [Suspect]
     Indication: BREAST CANCER
     Route: 048
     Dates: start: 20050808, end: 20050822

REACTIONS (5)
  - AGRANULOCYTOSIS [None]
  - DIARRHOEA [None]
  - MALIGNANT NEOPLASM PROGRESSION [None]
  - NEOPLASM MALIGNANT [None]
  - OBSTRUCTION [None]
